FAERS Safety Report 9120351 (Version 2)
Quarter: 2013Q1

REPORT INFORMATION
  Report Type: Spontaneous
  Country: US (occurrence: US)
  Receive Date: 20130226
  Receipt Date: 20130314
  Transmission Date: 20140127
  Serious: Yes (Death)
  Sender: FDA-Public Use
  Company Number: US-CELGENEUS-163-21660-13022892

PATIENT
  Age: 60 Year
  Sex: Male

DRUGS (1)
  1. ABRAXANE [Suspect]
     Indication: BRONCHIAL CARCINOMA
     Route: 065

REACTIONS (1)
  - Bronchial carcinoma [Fatal]
